FAERS Safety Report 5747253-5 (Version None)
Quarter: 2008Q2

REPORT INFORMATION
  Report Type: 
  Country: None (occurrence: None)
  Receive Date: 20080520
  Receipt Date: 20080328
  Transmission Date: 20081010
  Serious: No
  Sender: FDA-Public Use
  Company Number: 015#1#2008-00015

PATIENT
  Sex: Male

DRUGS (9)
  1. NEUPRO [Suspect]
     Indication: PARKINSON'S DISEASE
     Dosage: 6 MG/24H TRANSDERMAL
     Route: 062
     Dates: start: 20080101
  2. IRBESARTAN [Concomitant]
  3. TOPIRAMATE [Concomitant]
  4. ZOLPIDEM [Concomitant]
  5. CLOPIDOGREL [Concomitant]
  6. LANSOPRAZOLE [Concomitant]
  7. ATORVASTATIN CALCIUM [Concomitant]
  8. DUTASTERIDE [Concomitant]
  9. MANIDIPINE (MANIDIPINE) [Concomitant]

REACTIONS (2)
  - EPISTAXIS [None]
  - HYPERTENSION [None]
